FAERS Safety Report 4646007-0 (Version None)
Quarter: 2005Q2

REPORT INFORMATION
  Report Type: 
  Country: None (occurrence: None)
  Receive Date: 20050425
  Receipt Date: 20050413
  Transmission Date: 20051028
  Serious: No
  Sender: FDA-Public Use
  Company Number: US-2005-000005

PATIENT
  Age: 40 Year
  Sex: Female

DRUGS (2)
  1. CLIMARA [Suspect]
     Indication: HORMONE REPLACEMENT THERAPY
     Dosage: 0.06 MG/D, CONT, TRANSDERMAL
     Route: 062
     Dates: start: 20040607, end: 20050103
  2. IMURAN [Concomitant]

REACTIONS (7)
  - CONDITION AGGRAVATED [None]
  - GOITRE [None]
  - OESOPHAGEAL DISORDER [None]
  - POST PROCEDURAL COMPLICATION [None]
  - SCAR [None]
  - TRACHEAL DISORDER [None]
  - WHITE BLOOD CELL COUNT INCREASED [None]
